FAERS Safety Report 26143212 (Version 1)
Quarter: 2025Q4

REPORT INFORMATION
  Report Type: Spontaneous
  Country: EG (occurrence: EG)
  Receive Date: 20251211
  Receipt Date: 20251211
  Transmission Date: 20260118
  Serious: Yes (Other)
  Sender: HIKMA
  Company Number: EG-HIKMA PHARMACEUTICALS-EG-H14001-25-12865

PATIENT
  Age: 34 Year
  Sex: Female
  Weight: 65 kg

DRUGS (6)
  1. DOXORUBICIN [Suspect]
     Active Substance: DOXORUBICIN
     Indication: Breast cancer
     Dosage: 97.8 MILLIGRAM, 3W
     Route: 041
     Dates: start: 202505
  2. DOXORUBICIN [Suspect]
     Active Substance: DOXORUBICIN
     Dosage: 97.8 MILLIGRAM, 3W (CYCLE THREE)
     Route: 041
     Dates: start: 20250707
  3. DOXORUBICIN [Suspect]
     Active Substance: DOXORUBICIN
     Dosage: 97.8 MILLIGRAM, 3W (CYCLE TWO)
     Route: 041
     Dates: start: 20250614
  4. CYCLOPHOSPHAMIDE [Suspect]
     Active Substance: CYCLOPHOSPHAMIDE
     Indication: Breast cancer
     Dosage: 978 MILLIGRAM, 3W
     Route: 041
     Dates: start: 202505
  5. CYCLOPHOSPHAMIDE [Suspect]
     Active Substance: CYCLOPHOSPHAMIDE
     Dosage: 978 MILLIGRAM, 3W (CYCLE THREE)
     Route: 041
     Dates: start: 20250707
  6. CYCLOPHOSPHAMIDE [Suspect]
     Active Substance: CYCLOPHOSPHAMIDE
     Dosage: 978 MILLIGRAM, 3W (CYCLE TWO)
     Route: 041
     Dates: start: 20250614

REACTIONS (4)
  - Neutropenia [Not Recovered/Not Resolved]
  - Nail discolouration [Not Recovered/Not Resolved]
  - Skin discolouration [Not Recovered/Not Resolved]
  - Fatigue [Recovered/Resolved]

NARRATIVE: CASE EVENT DATE: 20250101
